FAERS Safety Report 4555010-0 (Version None)
Quarter: 2004Q4

REPORT INFORMATION
  Report Type: 
  Country: None (occurrence: None)
  Receive Date: 20041217
  Receipt Date: 20040826
  Transmission Date: 20050328
  Serious: No
  Sender: FDA-Public Use
  Company Number: 2004-BP-07341BP(0)

PATIENT
  Sex: Female

DRUGS (5)
  1. SPIRIVA [Suspect]
     Dosage: NR (18 MCG), IH
     Dates: start: 20040816, end: 20040817
  2. PREDNISONE [Concomitant]
  3. AQUATASBDM (GUAIFENESIN W./DEXTROMETHORPHAN) [Concomitant]
  4. ALBUTEROL [Concomitant]
  5. ADVAIR (SERETIDE MITE) [Concomitant]

REACTIONS (2)
  - RASH MACULO-PAPULAR [None]
  - URTICARIA [None]
